FAERS Safety Report 9821182 (Version 2)
Quarter: 2014Q1

REPORT INFORMATION
  Report Type: Spontaneous
  Country: US (occurrence: US)
  Receive Date: 20140116
  Receipt Date: 20140116
  Transmission Date: 20141002
  Serious: Yes (Other)
  Sender: FDA-Public Use
  Company Number: US-RB-059564-13

PATIENT
  Age: 43 Year
  Sex: Female

DRUGS (4)
  1. SUBUTEX [Suspect]
     Indication: DRUG DEPENDENCE
     Route: 060
     Dates: start: 2013
  2. SUBOXONE FILM [Suspect]
     Indication: DRUG DEPENDENCE
     Dosage: SUBOXONE FILM
     Route: 060
     Dates: start: 2012, end: 2013
  3. NEURONTIN [Concomitant]
     Indication: NEURALGIA
     Dosage: FURTHER DOSING DETAILS UNKNOWN
     Route: 065
     Dates: start: 1994
  4. PRENATAL VITAMINS [Concomitant]
     Indication: PRENATAL CARE
     Dosage: 1 TABLET DAILY; FURTHER DOSING DETAILS UNKNOWN
     Route: 065
     Dates: start: 2013, end: 20131218

REACTIONS (4)
  - Foetal heart rate decreased [Recovered/Resolved]
  - Anxiety [Not Recovered/Not Resolved]
  - Depression [Not Recovered/Not Resolved]
  - Maternal exposure during pregnancy [Recovered/Resolved]
